FAERS Safety Report 11965988 (Version 1)
Quarter: 2016Q1

REPORT INFORMATION
  Report Type: Spontaneous
  Country: US (occurrence: US)
  Receive Date: 20160127
  Receipt Date: 20160127
  Transmission Date: 20160526
  Serious: No
  Sender: FDA-Public Use
  Company Number: US-PERRIGO-15US006144

PATIENT
  Sex: Female

DRUGS (2)
  1. ACETAMINOPHEN. [Suspect]
     Active Substance: ACETAMINOPHEN
     Dosage: UNKNOWN, UNKNOWN
     Route: 054
     Dates: start: 201506
  2. ACETAMINOPHEN. [Suspect]
     Active Substance: ACETAMINOPHEN
     Indication: PRODUCT USED FOR UNKNOWN INDICATION
     Dosage: UNKNOWN, UNKNOWN
     Route: 054
     Dates: start: 201506

REACTIONS (6)
  - Swelling [Unknown]
  - Toxicity to various agents [Unknown]
  - Pyrexia [Unknown]
  - Fluid retention [Unknown]
  - Rash [Unknown]
  - Malaise [Unknown]

NARRATIVE: CASE EVENT DATE: 20150601
